FAERS Safety Report 12995845 (Version 3)
Quarter: 2021Q3

REPORT INFORMATION
  Report Type: Report from Study
  Country: US (occurrence: US)
  Receive Date: 20161202
  Receipt Date: 20210919
  Transmission Date: 20211014
  Serious: Yes (Hospitalization)
  Sender: FDA-Public Use
  Company Number: US-CELGENEUS-USA-2016118705

PATIENT
  Age: 67 Year
  Sex: Female

DRUGS (12)
  1. CYTOXAN [Suspect]
     Active Substance: CYCLOPHOSPHAMIDE
     Indication: PLASMA CELL MYELOMA
     Dosage: 600MG
     Route: 041
  2. AMBIEN [Concomitant]
     Active Substance: ZOLPIDEM TARTRATE
     Indication: INSOMNIA
     Dosage: 10 MILLIGRAM
     Route: 048
     Dates: start: 20110329, end: 20120328
  3. DECADRON [Suspect]
     Active Substance: DEXAMETHASONE
     Indication: PLASMA CELL MYELOMA
     Dosage: 40MG
     Route: 048
  4. REVLIMID [Suspect]
     Active Substance: LENALIDOMIDE
     Indication: PLASMA CELL MYELOMA
     Dosage: 25MG
     Route: 048
  5. DECADRON [Suspect]
     Active Substance: DEXAMETHASONE
     Dosage: 4 MILLIGRAM
     Route: 048
     Dates: start: 201105
  6. PRILOSEC [Concomitant]
     Active Substance: OMEPRAZOLE MAGNESIUM
     Indication: GASTROOESOPHAGEAL REFLUX DISEASE
     Dosage: 2.5 MILLIGRAM
     Route: 048
     Dates: start: 20140324
  7. ACYCLOVIR. [Concomitant]
     Active Substance: ACYCLOVIR
     Indication: PROPHYLAXIS
     Dosage: 400 MILLIGRAM
     Route: 048
     Dates: start: 20110329
  8. FUROSEMIDE. [Concomitant]
     Active Substance: FUROSEMIDE
     Indication: FLUID RETENTION
     Dosage: 20 MILLIGRAM
     Route: 048
     Dates: start: 201201
  9. ARIXTRA [Concomitant]
     Active Substance: FONDAPARINUX SODIUM
     Indication: PROPHYLAXIS
     Dosage: .6 MILLILITER
     Route: 065
     Dates: start: 20121129, end: 201602
  10. ASPIRIN. [Concomitant]
     Active Substance: ASPIRIN
     Indication: HYPERLIPIDAEMIA
     Dosage: 81 MILLIGRAM
     Route: 048
     Dates: start: 201210
  11. AMLODIPINE [Concomitant]
     Active Substance: AMLODIPINE BESYLATE
     Indication: INSOMNIA
     Dosage: 5 MILLIGRAM
     Route: 048
     Dates: start: 201210
  12. ATORVASTATIN [Concomitant]
     Active Substance: ATORVASTATIN
     Indication: HYPERLIPIDAEMIA
     Dosage: 20 MILLIGRAM
     Route: 048
     Dates: start: 201210

REACTIONS (1)
  - Deep vein thrombosis [Recovered/Resolved]

NARRATIVE: CASE EVENT DATE: 201412
